FAERS Safety Report 14112058 (Version 2)
Quarter: 2017Q4

REPORT INFORMATION
  Report Type: Spontaneous
  Country: US (occurrence: US)
  Receive Date: 20171020
  Receipt Date: 20171107
  Transmission Date: 20180321
  Serious: Yes (Life-Threatening, Hospitalization, Disabling, Other)
  Sender: FDA-Public Use
  Company Number: US-PFIZER INC-2017451984

PATIENT
  Age: 61 Year
  Sex: Male
  Weight: 79.38 kg

DRUGS (3)
  1. LOSARTAN. [Concomitant]
     Active Substance: LOSARTAN
     Indication: HYPERTENSION
     Dosage: 100 MG, 1X/DAY
  2. VFEND [Suspect]
     Active Substance: VORICONAZOLE
     Indication: ARTHRITIS FUNGAL
     Dosage: 200 MG, 2X/DAY, CAPSULE
     Route: 048
     Dates: start: 2017, end: 2017
  3. ALLOPURINOL. [Concomitant]
     Active Substance: ALLOPURINOL
     Indication: GOUT
     Dosage: 100 MG, 1X/DAY

REACTIONS (12)
  - Haemoglobin decreased [Recovering/Resolving]
  - Weight decreased [Unknown]
  - Chromaturia [Recovering/Resolving]
  - Drug ineffective [Unknown]
  - Liver function test increased [Recovering/Resolving]
  - Blood bilirubin increased [Recovering/Resolving]
  - Urine odour abnormal [Recovering/Resolving]
  - Inflammation [Unknown]
  - Balance disorder [Recovered/Resolved]
  - Joint warmth [Unknown]
  - Hepatotoxicity [Unknown]
  - Fall [Unknown]
